FAERS Safety Report 20155478 (Version 1)
Quarter: 2021Q4

REPORT INFORMATION
  Report Type: Spontaneous
  Country: CN (occurrence: CN)
  Receive Date: 20211207
  Receipt Date: 20211207
  Transmission Date: 20220303
  Serious: Yes (Other)
  Sender: FDA-Public Use
  Company Number: CN-BAXTER-2021BAX038311

PATIENT
  Age: 36 Year
  Sex: Female
  Weight: 57.5 kg

DRUGS (6)
  1. IFOSFAMIDE [Suspect]
     Active Substance: IFOSFAMIDE
     Indication: Cardiac neoplasm malignant
     Dosage: 0.9% SODIUM CHLORIDE 500ML + IFOSFAMIDE 4G, D1-3
     Route: 041
     Dates: start: 20211026, end: 20211028
  2. SODIUM CHLORIDE [Suspect]
     Active Substance: SODIUM CHLORIDE
     Indication: Medication dilution
     Dosage: 0.9% SODIUM CHLORIDE 500ML + IFOSFAMIDE 4G, D1-3
     Route: 041
     Dates: start: 20211026, end: 20211028
  3. SODIUM CHLORIDE [Suspect]
     Active Substance: SODIUM CHLORIDE
     Dosage: 0.9% SODIUM CHLORIDE 40ML + MESNA 800 MG, D1-3
     Route: 042
     Dates: start: 20211026, end: 20211028
  4. DEXTROSE [Suspect]
     Active Substance: DEXTROSE
     Indication: Medication dilution
     Dosage: 5% GLUCOSE 100ML + DOXORUBICIN LIPOSOME (LIBAODUO) 60 MG, VIA ELECTRONIC PUMP FOR 24H, D1
     Route: 050
     Dates: start: 20211026, end: 20211026
  5. DOXORUBICIN HYDROCHLORIDE [Suspect]
     Active Substance: DOXORUBICIN HYDROCHLORIDE
     Indication: Cardiac neoplasm malignant
     Dosage: ROUTE OF ADMINISTRATION: ELECTRONIC PUMP FOR 24H, 5% GLUCOSE 100ML + DOXORUBICIN LIPOSOME 60 MG, D1
     Route: 050
     Dates: start: 20211026, end: 20211026
  6. MESNA [Suspect]
     Active Substance: MESNA
     Indication: Cardiac neoplasm malignant
     Dosage: 0.9% SODIUM CHLORIDE 40 ML + MESNA 800 MG, D1-3
     Route: 042
     Dates: start: 20211026, end: 20211028

REACTIONS (1)
  - Myelosuppression [Recovering/Resolving]

NARRATIVE: CASE EVENT DATE: 20211106
